FAERS Safety Report 7101362-7 (Version None)
Quarter: 2010Q4

REPORT INFORMATION
  Report Type: 
  Country: None (occurrence: None)
  Receive Date: 20101115
  Receipt Date: 20100504
  Transmission Date: 20110411
  Serious: No
  Sender: FDA-Public Use
  Company Number: US-PFIZER INC-2010056149

PATIENT
  Sex: Female
  Weight: 52 kg

DRUGS (4)
  1. MEDROL [Suspect]
     Indication: PULMONARY CONGESTION
     Dosage: UNK
     Dates: start: 20100501
  2. WARFARIN [Concomitant]
     Dosage: UNK
  3. DIGOXIN [Concomitant]
     Indication: ATRIAL FIBRILLATION
     Dosage: UNK
  4. VITAMINS [Concomitant]
     Dosage: UNK

REACTIONS (2)
  - CIRCUMSTANCE OR INFORMATION CAPABLE OF LEADING TO MEDICATION ERROR [None]
  - PALPITATIONS [None]
